FAERS Safety Report 5488257-X (Version None)
Quarter: 2007Q4

REPORT INFORMATION
  Report Type: 
  Country: None (occurrence: None)
  Receive Date: 20071017
  Receipt Date: 20071008
  Transmission Date: 20080405
  Serious: Yes (Other)
  Sender: FDA-Public Use
  Company Number: BR-ROCHE-524370

PATIENT
  Age: 19 Year
  Sex: Female
  Weight: 53 kg

DRUGS (2)
  1. ISOTRETINOIN [Suspect]
     Indication: ACNE
     Dosage: STRENGTH AND FORMULATION REPORTED AS 10-20 MG/CAP.
     Route: 048
     Dates: start: 20070101, end: 20070901
  2. PERLUTAN [Concomitant]
     Indication: CONTRACEPTION
     Dates: end: 20070101

REACTIONS (2)
  - NO ADVERSE REACTION [None]
  - PREGNANCY [None]
